FAERS Safety Report 9697129 (Version 1)
Quarter: 2013Q4

REPORT INFORMATION
  Report Type: Spontaneous
  Country: US (occurrence: US)
  Receive Date: 20131120
  Receipt Date: 20131120
  Transmission Date: 20140711
  Serious: No
  Sender: FDA-Public Use
  Company Number: US-BIOGENIDEC-2013BI108587

PATIENT
  Age: 42 Year
  Sex: Female

DRUGS (1)
  1. TYSABRI [Suspect]
     Indication: MULTIPLE SCLEROSIS
     Route: 042
     Dates: start: 20090309

REACTIONS (6)
  - Dyspnoea [Recovered/Resolved]
  - Aphagia [Recovered/Resolved]
  - Hypersensitivity [Recovered/Resolved with Sequelae]
  - Heart rate increased [Unknown]
  - Blood pressure decreased [Unknown]
  - Headache [Unknown]
